FAERS Safety Report 23239748 (Version 1)
Quarter: 2023Q4

REPORT INFORMATION
  Report Type: Spontaneous
  Country: US (occurrence: None)
  Receive Date: 20231121
  Receipt Date: 20231121
  Transmission Date: 20240109
  Serious: Yes (Hospitalization)
  Sender: FDA-Public Use
  Company Number: None

PATIENT
  Age: 48 Year
  Sex: Male
  Weight: 109 kg

DRUGS (1)
  1. KETOROLAC TROMETHAMINE [Suspect]
     Active Substance: KETOROLAC TROMETHAMINE
     Dosage: FREQUENCY : ONCE;?
     Route: 030
     Dates: start: 20231115, end: 20231115

REACTIONS (8)
  - Hypertension [None]
  - Rash [None]
  - Skin discolouration [None]
  - Arthralgia [None]
  - Back pain [None]
  - Chest pain [None]
  - Dyspnoea [None]
  - Dysuria [None]

NARRATIVE: CASE EVENT DATE: 20231115
